FAERS Safety Report 6187212-4 (Version None)
Quarter: 2009Q2

REPORT INFORMATION
  Report Type: 
  Country: None (occurrence: None)
  Receive Date: 20090512
  Receipt Date: 20090505
  Transmission Date: 20091009
  Serious: Yes (Death)
  Sender: FDA-Public Use
  Company Number: PHHY2009JP06448

PATIENT
  Sex: Female
  Weight: 35 kg

DRUGS (12)
  1. COMTAN [Suspect]
     Indication: DRUG EFFECT DECREASED
     Dosage: 500 MG/DAY
     Route: 048
     Dates: end: 20071226
  2. COMTAN [Suspect]
     Dosage: 300 MG/DAY
     Route: 048
     Dates: end: 20080104
  3. COMTAN [Suspect]
     Dosage: 500 MG/DAY
     Route: 048
     Dates: end: 20080128
  4. CARBIDOPA AND LEVODOPA [Concomitant]
     Indication: PARKINSON'S DISEASE
     Dosage: 600MG, UNK
     Route: 048
     Dates: start: 20060925, end: 20080131
  5. PRAMIPEXOLE DIHYDROCHLORIDE [Concomitant]
     Indication: PARKINSON'S DISEASE
     Dosage: 3 MG, UNK
     Route: 048
     Dates: start: 20061106, end: 20080131
  6. NAUZELIN [Concomitant]
     Dosage: 30 MG, UNK
     Route: 048
     Dates: start: 20070710
  7. SELBEX [Concomitant]
     Dosage: 150 MG, UNK
     Route: 048
     Dates: start: 20070710
  8. SEVEN EP [Concomitant]
     Dosage: 3 DF, UNK
     Route: 048
     Dates: start: 20070710
  9. LUVOX [Concomitant]
     Dosage: 75 MG, UNK
     Route: 048
     Dates: start: 20070710
  10. MAGLAX [Concomitant]
     Dosage: 660 MG, UNK
     Route: 048
     Dates: start: 20070710
  11. RIZE [Concomitant]
     Dosage: 10 MG, UNK
     Route: 048
     Dates: start: 20070710
  12. EVISTA [Concomitant]
     Dosage: 60 MG, UNK
     Route: 048
     Dates: start: 20070710

REACTIONS (5)
  - ABDOMINAL DISTENSION [None]
  - CARDIAC FAILURE ACUTE [None]
  - CONSTIPATION [None]
  - GASTROINTESTINAL SOUNDS ABNORMAL [None]
  - X-RAY GASTROINTESTINAL TRACT ABNORMAL [None]
